FAERS Safety Report 9188950 (Version 2)
Quarter: 2013Q2

REPORT INFORMATION
  Report Type: Spontaneous
  Country: US (occurrence: US)
  Receive Date: 20130326
  Receipt Date: 20130521
  Transmission Date: 20140414
  Serious: Yes (Hospitalization)
  Sender: FDA-Public Use
  Company Number: US-BIOGENIDEC-2013BI025609

PATIENT
  Age: 59 Year
  Sex: Female

DRUGS (2)
  1. AVONEX [Suspect]
     Indication: MULTIPLE SCLEROSIS
     Route: 030
     Dates: start: 20000225, end: 20060101
  2. AVONEX [Suspect]
     Indication: MULTIPLE SCLEROSIS
     Route: 030
     Dates: start: 20130225

REACTIONS (14)
  - Transient ischaemic attack [Recovered/Resolved]
  - Cardiac failure congestive [Recovered/Resolved]
  - Arrhythmia [Unknown]
  - Optic neuritis [Unknown]
  - Central nervous system lesion [Unknown]
  - Incontinence [Not Recovered/Not Resolved]
  - Osteoarthritis [Unknown]
  - Osteoporosis [Unknown]
  - Hallucination [Recovered/Resolved]
  - Muscle spasms [Unknown]
  - Depression [Unknown]
  - Muscular weakness [Not Recovered/Not Resolved]
  - Muscle spasticity [Unknown]
  - Multiple sclerosis relapse [Recovered/Resolved]
